FAERS Safety Report 6150453-6 (Version None)
Quarter: 2009Q2

REPORT INFORMATION
  Report Type: 
  Country: None (occurrence: None)
  Receive Date: 20090409
  Receipt Date: 20090330
  Transmission Date: 20091009
  Serious: Yes (Other)
  Sender: FDA-Public Use
  Company Number: PHEH2009US03166

PATIENT
  Age: 81 Year
  Sex: Male

DRUGS (6)
  1. TEKTURNA [Suspect]
     Indication: HYPERTENSION
     Dosage: 150 MG, QD
     Dates: start: 20080101
  2. TERAZOSIN HCL [Suspect]
     Dosage: 2 MG, QD
     Route: 048
  3. TERAZOSIN HCL [Suspect]
     Dosage: 1 MG, QD
     Route: 048
     Dates: end: 20090326
  4. WARFARIN SODIUM [Concomitant]
     Indication: ATRIAL FIBRILLATION
     Dosage: UNK, UNK
     Dates: end: 20090326
  5. PRILOSEC [Concomitant]
     Dosage: UNK, UNK
  6. LORAZEPAM [Concomitant]
     Dosage: 0.5 MG, UNK
     Route: 048

REACTIONS (6)
  - ASTHENIA [None]
  - BLOOD PRESSURE FLUCTUATION [None]
  - DRY MOUTH [None]
  - FATIGUE [None]
  - HEART RATE DECREASED [None]
  - KNEE ARTHROPLASTY [None]
